FAERS Safety Report 4365896-0 (Version None)
Quarter: 2004Q2

REPORT INFORMATION
  Report Type: 
  Country: None (occurrence: None)
  Receive Date: 20040527
  Receipt Date: 20040505
  Transmission Date: 20050107
  Serious: Yes (Hospitalization)
  Sender: FDA-Public Use
  Company Number: US-BRISTOL-MYERS SQUIBB COMPANY-12580569

PATIENT
  Weight: 96 kg

DRUGS (8)
  1. CARBOPLATIN [Suspect]
     Indication: BREAST CANCER METASTATIC
     Dosage: THERAPY DATES: 11-NOV-2003 TO 18-DEC-2003 (CYCLE 2, DAY 15); AUC 2
     Route: 042
     Dates: start: 20031218, end: 20031218
  2. TAXOTERE [Suspect]
     Indication: BREAST CANCER METASTATIC
     Dosage: THERAPY DATES: 11-NOV-2003 TO 18-DEC-2003 (CYCLE 2, DAY 15)
     Route: 042
     Dates: start: 20031218, end: 20031218
  3. HERCEPTIN [Suspect]
     Indication: BREAST CANCER METASTATIC
     Dosage: THERAPY DATES: 11-NOV-2003 TO 18-DEC-2003 (CYCLE 2, DAY 15)
     Route: 042
     Dates: start: 20031218, end: 20031218
  4. LEVOXYL [Concomitant]
  5. PAXIL [Concomitant]
  6. VASOTEC [Concomitant]
  7. ATIVAN [Concomitant]
  8. PERCOCET [Concomitant]

REACTIONS (8)
  - ATRIAL FIBRILLATION [None]
  - BLOOD ALBUMIN DECREASED [None]
  - BLOOD CALCIUM DECREASED [None]
  - BLOOD GLUCOSE INCREASED [None]
  - BLOOD MAGNESIUM DECREASED [None]
  - BLOOD PRESSURE DECREASED [None]
  - DIARRHOEA [None]
  - FATIGUE [None]
